FAERS Safety Report 6463472-7 (Version None)
Quarter: 2009Q4

REPORT INFORMATION
  Report Type: 
  Country: None (occurrence: None)
  Receive Date: 20091201
  Receipt Date: 20091015
  Transmission Date: 20100525
  Serious: Yes (Other)
  Sender: FDA-Public Use
  Company Number: US-AMGEN-QUU368186

PATIENT
  Sex: Female
  Weight: 56.8 kg

DRUGS (10)
  1. ENBREL [Suspect]
     Indication: RHEUMATOID ARTHRITIS
     Route: 058
     Dates: start: 20070601
  2. METHOTREXATE [Concomitant]
     Route: 048
     Dates: start: 20040101
  3. PREDNISONE [Concomitant]
     Route: 048
  4. FOLIC ACID [Concomitant]
     Route: 048
  5. FISH OIL [Concomitant]
     Route: 048
  6. CALCIUM [Concomitant]
  7. UNSPECIFIED MEDICATION [Concomitant]
  8. SKELAXIN [Concomitant]
  9. MULTI-VITAMINS [Concomitant]
  10. VITAMIN D [Concomitant]

REACTIONS (10)
  - ARTHRALGIA [None]
  - BREAST CANCER IN SITU [None]
  - DRY SKIN [None]
  - FATIGUE [None]
  - JOINT STIFFNESS [None]
  - JOINT SWELLING [None]
  - NECK PAIN [None]
  - PROCEDURAL PAIN [None]
  - PRURITUS [None]
  - SINUS DISORDER [None]
